FAERS Safety Report 19511222 (Version 1)
Quarter: 2021Q3

REPORT INFORMATION
  Report Type: Spontaneous
  Country: US (occurrence: US)
  Receive Date: 20210709
  Receipt Date: 20210709
  Transmission Date: 20211014
  Serious: No
  Sender: FDA-Public Use
  Company Number: US-TEVA-2021-US-1930714

PATIENT
  Age: 74 Year
  Sex: Female
  Weight: 53.52 kg

DRUGS (4)
  1. LETROZOLE ACCORD [Suspect]
     Active Substance: LETROZOLE
     Route: 065
  2. OMEPRAZOLE. [Suspect]
     Active Substance: OMEPRAZOLE
     Indication: GASTROOESOPHAGEAL REFLUX DISEASE
     Dosage: 20 MILLIGRAM DAILY; IN THE MORNING
     Route: 065
     Dates: end: 202106
  3. IBRANCE [Suspect]
     Active Substance: PALBOCICLIB
     Dosage: 100 MILLIGRAM DAILY; 21 DAYS ON AND OFF FOR 7 DAYS
     Route: 048
  4. LEVOCETIRIZINE [Suspect]
     Active Substance: LEVOCETIRIZINE
     Dosage: 5 MILLIGRAM DAILY; AT NIGHT
     Route: 048
     Dates: start: 202106

REACTIONS (1)
  - Fatigue [Unknown]

NARRATIVE: CASE EVENT DATE: 2021
